FAERS Safety Report 12597131 (Version 1)
Quarter: 2016Q3

REPORT INFORMATION
  Report Type: Spontaneous
  Country: GB (occurrence: GB)
  Receive Date: 20160727
  Receipt Date: 20160727
  Transmission Date: 20161109
  Serious: Yes (Other)
  Sender: FDA-Public Use
  Company Number: GB-PAR PHARMACEUTICAL COMPANIES-2016SCPR015659

PATIENT

DRUGS (2)
  1. DEXAMETHASONE. [Concomitant]
     Active Substance: DEXAMETHASONE
     Indication: OBSTRUCTIVE AIRWAYS DISORDER
     Dosage: 8 MG, UNKNOWN
     Route: 042
     Dates: start: 20150923
  2. ADRENALIN [Suspect]
     Active Substance: EPINEPHRINE
     Indication: OBSTRUCTIVE AIRWAYS DISORDER
     Dosage: 1 MCG/5ML, UNKNOWN
     Dates: start: 20150923

REACTIONS (2)
  - Stress cardiomyopathy [Unknown]
  - Product use issue [Unknown]

NARRATIVE: CASE EVENT DATE: 20150923
